FAERS Safety Report 13696567 (Version 1)
Quarter: 2017Q2

REPORT INFORMATION
  Report Type: Spontaneous
  Country: JP (occurrence: JP)
  Receive Date: 20170628
  Receipt Date: 20170628
  Transmission Date: 20170830
  Serious: Yes (Hospitalization, Other)
  Sender: FDA-Public Use
  Company Number: PHJP2017JP009018

PATIENT
  Age: 67 Year
  Sex: Female

DRUGS (2)
  1. AFINITOR [Suspect]
     Active Substance: EVEROLIMUS
     Indication: NEUROENDOCRINE TUMOUR
     Dosage: 10 MG, QD
     Route: 048
     Dates: start: 20160909, end: 20170312
  2. AFINITOR [Suspect]
     Active Substance: EVEROLIMUS
     Dosage: 10 MG, QD
     Route: 048
     Dates: start: 20170525

REACTIONS (11)
  - Pulmonary hypertension [Unknown]
  - Cardiomegaly [Unknown]
  - Dyspnoea [Unknown]
  - Congestive cardiomyopathy [Unknown]
  - Fatigue [Unknown]
  - Malaise [Unknown]
  - Cardiac failure [Recovering/Resolving]
  - Supraventricular extrasystoles [Unknown]
  - Interstitial lung disease [Recovered/Resolved]
  - Electrocardiogram T wave abnormal [Unknown]
  - Aortic valve incompetence [Unknown]

NARRATIVE: CASE EVENT DATE: 20170312
